FAERS Safety Report 23718157 (Version 1)
Quarter: 2024Q2

REPORT INFORMATION
  Report Type: Spontaneous
  Country: US (occurrence: None)
  Receive Date: 20240405
  Receipt Date: 20240405
  Transmission Date: 20240715
  Serious: Yes (Hospitalization)
  Sender: FDA-Public Use
  Company Number: None

PATIENT
  Age: 57 Year
  Sex: Female

DRUGS (1)
  1. PREVYMIS [Suspect]
     Active Substance: LETERMOVIR
     Indication: Uterine leiomyoma
     Dosage: FREQUENCY : DAILY;?
     Dates: start: 20240312

REACTIONS (3)
  - Fatigue [None]
  - Gastrointestinal disorder [None]
  - Therapy cessation [None]

NARRATIVE: CASE EVENT DATE: 20240331
